FAERS Safety Report 18907541 (Version 3)
Quarter: 2021Q2

REPORT INFORMATION
  Report Type: Report from Study
  Country: None (occurrence: PR)
  Receive Date: 20210217
  Receipt Date: 20210510
  Transmission Date: 20210717
  Serious: Yes (Death, Hospitalization, Other)
  Sender: FDA-Public Use
  Company Number: PR-ABBVIE-21K-131-3759564-00

PATIENT
  Age: 74 Year
  Sex: Female
  Weight: 79.9 kg

DRUGS (1)
  1. HUMIRA [Suspect]
     Active Substance: ADALIMUMAB
     Indication: RHEUMATOID ARTHRITIS
     Route: 058
     Dates: start: 20150615, end: 202101

REACTIONS (5)
  - Dementia [Not Recovered/Not Resolved]
  - Respiratory failure [Fatal]
  - Hypoxia [Not Recovered/Not Resolved]
  - Sleep apnoea syndrome [Not Recovered/Not Resolved]
  - Pneumonia [Recovering/Resolving]

NARRATIVE: CASE EVENT DATE: 20210117
